FAERS Safety Report 9316390 (Version 2)
Quarter: 2013Q3

REPORT INFORMATION
  Report Type: Report from Study
  Country: US (occurrence: US)
  Receive Date: 20130530
  Receipt Date: 20130723
  Transmission Date: 20140515
  Serious: Yes (Death, Life-Threatening, Hospitalization)
  Sender: FDA-Public Use
  Company Number: US-GENZYME-MOZO-1000824

PATIENT
  Age: 56 Year
  Sex: Male
  Weight: 83.2 kg

DRUGS (24)
  1. FILGRASTIM [Suspect]
     Dosage: UNK (RESTARTED)
     Route: 065
     Dates: start: 20120831, end: 20120912
  2. FILGRASTIM [Suspect]
     Dosage: 780 MCG, QOD OF CYCLE 7
     Route: 058
     Dates: start: 20130201, end: 20130204
  3. SORAFENIB [Suspect]
     Indication: ACUTE MYELOID LEUKAEMIA
     Dosage: 800 MG, BID ON DAYS 1-28
     Route: 048
     Dates: start: 20120816, end: 20120825
  4. SORAFENIB [Suspect]
     Dosage: UNK (RESTARTED)
     Route: 065
     Dates: start: 20120831, end: 20120912
  5. SORAFENIB [Suspect]
     Dosage: 800 MG, BID ON DAYS 1-28
     Route: 048
     Dates: start: 20130201, end: 20130204
  6. ACYCLOVIR [Concomitant]
     Indication: PRODUCT USED FOR UNKNOWN INDICATION
     Dosage: UNK
     Route: 065
  7. ALLOPURINOL [Concomitant]
     Indication: PRODUCT USED FOR UNKNOWN INDICATION
     Dosage: UNK
     Route: 065
  8. GUAIFENESIN [Concomitant]
     Indication: PRODUCT USED FOR UNKNOWN INDICATION
     Dosage: UNK
     Route: 065
  9. FAMOTIDINE [Concomitant]
     Indication: PRODUCT USED FOR UNKNOWN INDICATION
     Dosage: UNK
     Route: 065
  10. FUROSEMIDE [Concomitant]
     Indication: PRODUCT USED FOR UNKNOWN INDICATION
     Dosage: UNK
     Route: 065
  11. GABAPENTIN [Concomitant]
     Indication: PRODUCT USED FOR UNKNOWN INDICATION
     Dosage: UNK
     Route: 065
  12. HYDROMORPHONE [Concomitant]
     Indication: PRODUCT USED FOR UNKNOWN INDICATION
     Dosage: UNK
     Route: 065
  13. LINEZOLID [Concomitant]
     Indication: PRODUCT USED FOR UNKNOWN INDICATION
     Dosage: UNK
     Route: 065
  14. MEROPENEM [Concomitant]
     Indication: PRODUCT USED FOR UNKNOWN INDICATION
     Dosage: UNK
     Route: 065
  15. METOPROLOL [Concomitant]
     Indication: PRODUCT USED FOR UNKNOWN INDICATION
     Dosage: UNK
     Route: 065
  16. ZOFRAN [Concomitant]
     Indication: PRODUCT USED FOR UNKNOWN INDICATION
     Dosage: UNK
     Route: 065
  17. SENNA [Concomitant]
     Indication: PRODUCT USED FOR UNKNOWN INDICATION
     Dosage: UNK
     Route: 065
  18. TEMAZEPAM [Concomitant]
     Indication: PRODUCT USED FOR UNKNOWN INDICATION
     Dosage: UNK
     Route: 065
  19. TRAMADOL [Concomitant]
     Indication: PRODUCT USED FOR UNKNOWN INDICATION
     Dosage: UNK
     Route: 065
  20. VORICONAZOLE [Concomitant]
     Indication: PRODUCT USED FOR UNKNOWN INDICATION
     Dosage: UNK
     Route: 065
  21. MOZOBIL [Suspect]
     Indication: ACUTE MYELOID LEUKAEMIA
     Dosage: 18318 MCG, QOD ON DAYS 1,3,5,7,9,11,13 OF CYCLE 1
     Route: 058
     Dates: start: 20120816, end: 20120826
  22. MOZOBIL [Suspect]
     Dosage: UNK (RESTARTED)
     Route: 065
     Dates: start: 20120831, end: 20120912
  23. MOZOBIL [Suspect]
     Dosage: 18318 MCG, QOD OF CYCLE 7
     Route: 058
     Dates: start: 20130201, end: 20130204
  24. FILGRASTIM [Suspect]
     Indication: ACUTE MYELOID LEUKAEMIA
     Dosage: 780 MCG, QOD ON DAYS 1,3,5,7,9,11,13
     Route: 058
     Dates: start: 20120816, end: 20120826

REACTIONS (4)
  - Loss of consciousness [Not Recovered/Not Resolved]
  - Cardiac arrest [Fatal]
  - Central nervous system neoplasm [Not Recovered/Not Resolved]
  - Respiratory distress [Not Recovered/Not Resolved]
